FAERS Safety Report 8350244-1 (Version None)
Quarter: 2012Q2

REPORT INFORMATION
  Report Type: 
  Country: None (occurrence: None)
  Receive Date: 20120510
  Receipt Date: 20120503
  Transmission Date: 20120825
  Serious: Yes (Hospitalization, Other)
  Sender: FDA-Public Use
  Company Number: DE-ROCHE-1062858

PATIENT
  Sex: Female
  Weight: 63 kg

DRUGS (9)
  1. HERCEPTIN [Suspect]
     Dosage: LAST DOSE PRIOR TO SAE: 17/APR/2012. MAINTENANCE DOSE.
     Route: 042
     Dates: start: 20120417
  2. LAPATINIB [Suspect]
     Indication: BREAST CANCER
     Dosage: LAST DOSE PRIOR TO SAE: 17/APR/2012
     Route: 048
     Dates: start: 20120327
  3. GRANISETRON [Concomitant]
     Dates: start: 20120317
  4. HERCEPTIN [Suspect]
     Indication: BREAST CANCER
     Dosage: LOADING DOSE AS PER PROTOCOL
     Route: 042
     Dates: start: 20120327, end: 20120327
  5. CARBOPLATIN [Suspect]
     Indication: BREAST CANCER
     Dosage: LAST DOSE PRIOR TO SAE: 17/APR/2012
     Route: 042
     Dates: start: 20120327
  6. PACLITAXEL [Suspect]
     Indication: BREAST CANCER
     Dosage: LAST DOSE PRIOR TO SAE: 17/APR/2012
     Route: 042
     Dates: start: 20120327
  7. DOXORUBICIN HCL [Suspect]
     Indication: BREAST CANCER
     Dosage: LAST DOSE PRIOR TO SAE: 17/APR/2012
     Route: 042
     Dates: start: 20120327
  8. FENISTIL (GERMANY) [Concomitant]
     Dates: start: 20120317
  9. LOPERAMIDE [Concomitant]
     Dates: start: 20120317

REACTIONS (1)
  - EMBOLISM [None]
